FAERS Safety Report 25579349 (Version 1)
Quarter: 2025Q3

REPORT INFORMATION
  Report Type: Spontaneous
  Country: US (occurrence: US)
  Receive Date: 20250718
  Receipt Date: 20250718
  Transmission Date: 20251021
  Serious: Yes (Other)
  Sender: NOVO NORDISK
  Company Number: US-NOVOPROD-1260657

PATIENT
  Age: 40 Year
  Sex: Female
  Weight: 106.58 kg

DRUGS (2)
  1. WEGOVY [Suspect]
     Active Substance: SEMAGLUTIDE
     Route: 058
  2. WEGOVY [Suspect]
     Active Substance: SEMAGLUTIDE
     Indication: Obesity
     Route: 058
     Dates: start: 202405, end: 202405

REACTIONS (3)
  - Pancreatitis [Unknown]
  - Gastroenteritis [Unknown]
  - Off label use [Unknown]

NARRATIVE: CASE EVENT DATE: 20240520
